FAERS Safety Report 9467705 (Version 1)
Quarter: 2013Q3

REPORT INFORMATION
  Report Type: Spontaneous
  Country: US (occurrence: None)
  Receive Date: 20130819
  Receipt Date: 20130819
  Transmission Date: 20140515
  Serious: Yes (Other)
  Sender: FDA-Public Use
  Company Number: None

PATIENT
  Age: 62 Year
  Sex: Female
  Weight: 68.04 kg

DRUGS (1)
  1. PRAVASTATIN [Suspect]
     Dosage: 1    ONCE DAILY  TAKEN BY MOUTH
     Route: 048

REACTIONS (6)
  - Myalgia [None]
  - Asthenia [None]
  - Fatigue [None]
  - Amnesia [None]
  - Exercise tolerance decreased [None]
  - Cognitive disorder [None]
